FAERS Safety Report 10978804 (Version 1)
Quarter: 2015Q2

REPORT INFORMATION
  Report Type: Spontaneous
  Country: US (occurrence: None)
  Receive Date: 20150401
  Receipt Date: 20150401
  Transmission Date: 20150821
  Serious: Yes (Other)
  Sender: FDA-Public Use
  Company Number: None

PATIENT
  Age: 2 Year
  Sex: Female
  Weight: 19.55 kg

DRUGS (1)
  1. LEVETIRACETAM. [Suspect]
     Active Substance: LEVETIRACETAM
     Indication: SEIZURE
     Dosage: 7 ML AM / 9 ML PM
     Route: 048

REACTIONS (2)
  - Adverse drug reaction [None]
  - Product substitution issue [None]

NARRATIVE: CASE EVENT DATE: 20100927
